FAERS Safety Report 13042855 (Version 13)
Quarter: 2020Q3

REPORT INFORMATION
  Report Type: Spontaneous
  Country: US (occurrence: US)
  Receive Date: 20161219
  Receipt Date: 20200825
  Transmission Date: 20201102
  Serious: No
  Sender: FDA-Public Use
  Company Number: US-ACTELION-A-NJ2016-147053

PATIENT
  Age: 60 Year
  Sex: Female
  Weight: 86.62 kg

DRUGS (5)
  1. XARELTO [Concomitant]
     Active Substance: RIVAROXABAN
  2. OPSUMIT [Suspect]
     Active Substance: MACITENTAN
     Indication: PULMONARY ARTERIAL HYPERTENSION
     Dosage: 10 MG, QD
     Route: 048
     Dates: start: 20161205
  3. OPSUMIT [Suspect]
     Active Substance: MACITENTAN
     Dosage: 10 MG, QD
     Route: 048
     Dates: start: 20161205
  4. TETANUS ADSORBED VACCINE [Concomitant]
  5. REMODULIN [Suspect]
     Active Substance: TREPROSTINIL
     Indication: PULMONARY ARTERIAL HYPERTENSION
     Dosage: 30 NG/KG, PER MIN
     Route: 042
     Dates: start: 20160517

REACTIONS (13)
  - Paranasal sinus hypersecretion [Unknown]
  - Sinusitis [Unknown]
  - Catheter management [Unknown]
  - Atrial fibrillation [Unknown]
  - Epistaxis [Unknown]
  - Injection site pruritus [Unknown]
  - Diarrhoea [Unknown]
  - Catheter site erythema [Unknown]
  - Infusion site haemorrhage [Unknown]
  - Infusion site discomfort [Unknown]
  - Oropharyngeal pain [Unknown]
  - Device breakage [Unknown]
  - Catheter site pain [Unknown]

NARRATIVE: CASE EVENT DATE: 20161211
